FAERS Safety Report 9635381 (Version 1)
Quarter: 2013Q4

REPORT INFORMATION
  Report Type: Spontaneous
  Country: AU (occurrence: US)
  Receive Date: 20131021
  Receipt Date: 20131021
  Transmission Date: 20140711
  Serious: No
  Sender: FDA-Public Use
  Company Number: AU-PURDUE-USA-2013-0103925

PATIENT
  Sex: Female

DRUGS (1)
  1. NORSPAN [Suspect]
     Indication: PAIN
     Dosage: 10 MCG/HR, WEEKLY
     Route: 062
     Dates: start: 201212, end: 201306

REACTIONS (2)
  - Inadequate analgesia [Recovered/Resolved]
  - Headache [Unknown]
